FAERS Safety Report 21139664 (Version 2)
Quarter: 2023Q2

REPORT INFORMATION
  Report Type: Spontaneous
  Country: CN (occurrence: CN)
  Receive Date: 20220727
  Receipt Date: 20230409
  Transmission Date: 20230722
  Serious: Yes (Death, Hospitalization, Other)
  Sender: FDA-Public Use
  Company Number: CN-JNJFOC-20220750951

PATIENT
  Sex: Male

DRUGS (1)
  1. ERLEADA [Suspect]
     Active Substance: APALUTAMIDE
     Indication: Product used for unknown indication
     Dosage: 120 TABLETS/BOTTLE/BOX
     Route: 048

REACTIONS (4)
  - Death [Fatal]
  - Systemic infection [Unknown]
  - Cardiac failure [Unknown]
  - Rash [Unknown]
